FAERS Safety Report 7023593-7 (Version None)
Quarter: 2010Q3

REPORT INFORMATION
  Report Type: 
  Country: None (occurrence: None)
  Receive Date: 20100930
  Receipt Date: 20100930
  Transmission Date: 20110219
  Serious: Yes (Other)
  Sender: FDA-Public Use
  Company Number: None

PATIENT
  Age: 65 Year
  Sex: Female
  Weight: 72.1219 kg

DRUGS (3)
  1. RECLAST [Suspect]
     Indication: OSTEOPOROSIS
     Dosage: 5MG 1X IV
     Route: 042
     Dates: start: 20100825
  2. PRAVASTATIN [Concomitant]
  3. VIT D [Concomitant]

REACTIONS (1)
  - IRITIS [None]
